FAERS Safety Report 24671089 (Version 1)
Quarter: 2024Q4

REPORT INFORMATION
  Report Type: Spontaneous
  Country: FR (occurrence: FR)
  Receive Date: 20241127
  Receipt Date: 20241127
  Transmission Date: 20250114
  Serious: Yes (Other)
  Sender: ASTELLAS
  Company Number: FR-ASTELLAS-2024-AER-020754

PATIENT
  Age: 72 Year
  Sex: Male
  Weight: 54 kg

DRUGS (5)
  1. CRESEMBA [Suspect]
     Active Substance: ISAVUCONAZONIUM SULFATE
     Indication: Bronchopulmonary aspergillosis
     Route: 048
     Dates: start: 20240723, end: 20240723
  2. CRESEMBA [Suspect]
     Active Substance: ISAVUCONAZONIUM SULFATE
     Route: 048
     Dates: start: 20240724, end: 20240724
  3. CRESEMBA [Suspect]
     Active Substance: ISAVUCONAZONIUM SULFATE
     Route: 048
     Dates: start: 202407, end: 20240808
  4. CRESEMBA [Suspect]
     Active Substance: ISAVUCONAZONIUM SULFATE
     Route: 048
     Dates: start: 20240808
  5. TAHOR [Concomitant]
     Active Substance: ATORVASTATIN CALCIUM
     Indication: Hypercholesterolaemia
     Route: 065
     Dates: start: 202407, end: 202407

REACTIONS (3)
  - Myalgia [Recovered/Resolved]
  - Drug level increased [Unknown]
  - Off label use [Unknown]

NARRATIVE: CASE EVENT DATE: 20240701
